FAERS Safety Report 9394320 (Version 2)
Quarter: 2013Q3

REPORT INFORMATION
  Report Type: Spontaneous
  Country: JO (occurrence: JO)
  Receive Date: 20130711
  Receipt Date: 20130806
  Transmission Date: 20140515
  Serious: Yes (Hospitalization, Other)
  Sender: FDA-Public Use
  Company Number: JO-RANBAXY-2013RR-71002

PATIENT
  Age: 24 Year
  Sex: Male

DRUGS (8)
  1. FLUOXETINE [Suspect]
     Indication: DEPRESSION
     Dosage: 20 MG/DAY
     Route: 065
  2. FENTANYL [Interacting]
     Indication: INDUCTION OF ANAESTHESIA
     Dosage: 100 ?G
     Route: 042
  3. PETHIDINE [Suspect]
     Indication: ANALGESIC THERAPY
     Dosage: 100 MG
     Route: 030
  4. SEVOFLURANE [Concomitant]
     Indication: MAINTENANCE OF ANAESTHESIA
     Dosage: UNK
     Route: 065
  5. MIDAZOLAM [Concomitant]
     Indication: INDUCTION OF ANAESTHESIA
     Dosage: 3 MG, UNK
     Route: 042
  6. PROPOFOL [Concomitant]
     Indication: INDUCTION OF ANAESTHESIA
     Dosage: 150 MG, UNK
     Route: 065
  7. PROPOFOL [Concomitant]
     Indication: ENDOTRACHEAL INTUBATION
     Dosage: 150 MG
     Route: 042
  8. MORPHINE [Concomitant]
     Indication: MAINTENANCE OF ANAESTHESIA
     Dosage: 3 MG, UNK
     Route: 042

REACTIONS (2)
  - Serotonin syndrome [Recovering/Resolving]
  - Drug interaction [Recovering/Resolving]
